FAERS Safety Report 7311547 (Version 2)
Quarter: 2013Q3

REPORT INFORMATION
  Report Type: Spontaneous
  Country: US (occurrence: US)
  Receive Date: 20100310
  Receipt Date: 20130701
  Transmission Date: 20140515
  Serious: No
  Sender: FDA-Public Use
  Company Number: US-BIOGENIDEC-2009BI041508

PATIENT
  Age: 52 Year
  Sex: Female

DRUGS (2)
  1. AVONEX [Suspect]
     Indication: MULTIPLE SCLEROSIS
     Route: 030
     Dates: start: 20090601
  2. AVONEX [Suspect]
     Indication: MULTIPLE SCLEROSIS
     Route: 030
     Dates: start: 20090618

REACTIONS (4)
  - Pulmonary oedema [Not Recovered/Not Resolved]
  - Injection site induration [Not Recovered/Not Resolved]
  - Influenza like illness [Recovered/Resolved]
  - Injection site pain [Not Recovered/Not Resolved]
